FAERS Safety Report 5152491-9 (Version None)
Quarter: 2006Q4

REPORT INFORMATION
  Report Type: 
  Country: None (occurrence: None)
  Receive Date: 20061109
  Receipt Date: 20061026
  Transmission Date: 20070319
  Serious: Yes (Death, Hospitalization)
  Sender: FDA-Public Use
  Company Number: 2006001567

PATIENT
  Sex: Male

DRUGS (2)
  1. TARCEVA [Suspect]
     Dates: start: 20060615
  2. AMIODARONE HCL [Suspect]

REACTIONS (4)
  - BRONCHOSPASM [None]
  - DYSPNOEA [None]
  - MALIGNANT NEOPLASM PROGRESSION [None]
  - RESPIRATORY DISORDER [None]
